FAERS Safety Report 15768203 (Version 1)
Quarter: 2018Q4

REPORT INFORMATION
  Report Type: Report from Study
  Country: US (occurrence: US)
  Receive Date: 20181227
  Receipt Date: 20181227
  Transmission Date: 20190205
  Serious: Yes (Hospitalization)
  Sender: FDA-Public Use
  Company Number: US-ACTELION-A-NJ2018-169128

PATIENT
  Age: 23 Year
  Sex: Female
  Weight: 53.61 kg

DRUGS (4)
  1. VELETRI [Suspect]
     Active Substance: EPOPROSTENOL
     Indication: PULMONARY ARTERIAL HYPERTENSION
     Dosage: 26 NG/KG, PER MIN
     Route: 042
  2. LETAIRIS [Concomitant]
     Active Substance: AMBRISENTAN
  3. VELETRI [Suspect]
     Active Substance: EPOPROSTENOL
     Dosage: 27 NG/KG, PER MIN
     Route: 042
  4. ADCIRCA [Concomitant]
     Active Substance: TADALAFIL

REACTIONS (20)
  - Pain in extremity [Unknown]
  - Rash generalised [Unknown]
  - Anxiety [Unknown]
  - Hospitalisation [Unknown]
  - Flushing [Unknown]
  - Catheter site discharge [Unknown]
  - Catheter site pain [Unknown]
  - Rash erythematous [Unknown]
  - Nausea [Unknown]
  - Catheter site vesicles [Unknown]
  - Abdominal pain upper [Unknown]
  - Groin pain [Recovered/Resolved]
  - Pain in jaw [Unknown]
  - Catheter site pruritus [Unknown]
  - Catheter site erythema [Unknown]
  - Diarrhoea [Unknown]
  - Vomiting [Unknown]
  - Device related infection [Unknown]
  - Staphylococcal infection [Unknown]
  - Headache [Unknown]

NARRATIVE: CASE EVENT DATE: 20180418
